FAERS Safety Report 7075301-1 (Version None)
Quarter: 2010Q4

REPORT INFORMATION
  Report Type: 
  Country: None (occurrence: None)
  Receive Date: 20101030
  Receipt Date: 20100810
  Transmission Date: 20110411
  Serious: No
  Sender: FDA-Public Use
  Company Number: US-WYE-H16425810

PATIENT
  Age: 59 Year
  Sex: Female
  Weight: 104.42 kg

DRUGS (2)
  1. ALAVERT [Suspect]
     Indication: NASAL CONGESTION
     Route: 048
     Dates: start: 20100624
  2. ALAVERT [Suspect]
     Indication: EYE PRURITUS

REACTIONS (1)
  - DRUG EFFECT DECREASED [None]
